FAERS Safety Report 7031959-4 (Version None)
Quarter: 2010Q4

REPORT INFORMATION
  Report Type: 
  Country: None (occurrence: None)
  Receive Date: 20101007
  Receipt Date: 20100927
  Transmission Date: 20110411
  Serious: Yes (Hospitalization, Disabling, Other)
  Sender: FDA-Public Use
  Company Number: US-CELGENEUS-163-20785-10080739

PATIENT
  Sex: Female

DRUGS (2)
  1. THALOMID [Suspect]
     Indication: MULTIPLE MYELOMA
     Dosage: 0MG-100MG
     Route: 048
     Dates: start: 20070301
  2. THALOMID [Suspect]
     Route: 048
     Dates: start: 20090501, end: 20091101

REACTIONS (4)
  - DRUG INEFFECTIVE [None]
  - FRACTURE [None]
  - MALIGNANT NEOPLASM PROGRESSION [None]
  - MULTIPLE MYELOMA [None]
